FAERS Safety Report 18133608 (Version 2)
Quarter: 2021Q3

REPORT INFORMATION
  Report Type: Spontaneous
  Country: CA (occurrence: CA)
  Receive Date: 20200811
  Receipt Date: 20210720
  Transmission Date: 20211014
  Serious: Yes (Life-Threatening)
  Sender: FDA-Public Use
  Company Number: CA-ACCORD-194674

PATIENT
  Age: 4 Year
  Sex: Female
  Weight: 16 kg

DRUGS (44)
  1. BUSULFAN. [Suspect]
     Active Substance: BUSULFAN
     Indication: ACUTE LYMPHOCYTIC LEUKAEMIA
     Route: 042
  2. MORPHINE [Concomitant]
     Active Substance: MORPHINE
  3. FAMCICLOVIR. [Concomitant]
     Active Substance: FAMCICLOVIR
  4. CICLOSPORIN [Concomitant]
     Active Substance: CYCLOSPORINE
  5. CHLORHEXIDINE [Concomitant]
     Active Substance: CHLORHEXIDINE
  6. BETAMETHASONE. [Concomitant]
     Active Substance: BETAMETHASONE
     Route: 061
  7. PARACETAMOL [Concomitant]
     Active Substance: ACETAMINOPHEN
  8. CALCIUM\ERGOCALCIFEROL [Concomitant]
     Active Substance: CALCIUM\ERGOCALCIFEROL
  9. BUSULFAN. [Suspect]
     Active Substance: BUSULFAN
     Indication: ACUTE LYMPHOCYTIC LEUKAEMIA
     Route: 042
  10. THIOTEPA. [Suspect]
     Active Substance: THIOTEPA
     Indication: ACUTE LYMPHOCYTIC LEUKAEMIA
     Route: 042
  11. RANITIDINE. [Concomitant]
     Active Substance: RANITIDINE
  12. MACROGOL [Concomitant]
     Active Substance: POLYETHYLENE GLYCOLS
  13. NIFEDIPINE. [Concomitant]
     Active Substance: NIFEDIPINE
     Route: 065
  14. MAGNESIUM HYDROXIDE. [Concomitant]
     Active Substance: MAGNESIUM HYDROXIDE
  15. RITUXIMAB. [Suspect]
     Active Substance: RITUXIMAB
     Indication: ACUTE LYMPHOCYTIC LEUKAEMIA
     Route: 042
  16. VANCOMYCIN [Concomitant]
     Active Substance: VANCOMYCIN
  17. PIPERACILLIN/TAZOBACTAM [Concomitant]
     Active Substance: PIPERACILLIN SODIUM\TAZOBACTAM SODIUM
  18. LEVETIRACETAM. [Concomitant]
     Active Substance: LEVETIRACETAM
  19. FLUCONAZOLE. [Concomitant]
     Active Substance: FLUCONAZOLE
  20. DIPHENHYDRAMINE. [Concomitant]
     Active Substance: DIPHENHYDRAMINE
  21. ALTEPLASE. [Concomitant]
     Active Substance: ALTEPLASE
  22. PREDNISONE. [Concomitant]
     Active Substance: PREDNISONE
  23. HEPARIN [Concomitant]
     Active Substance: HEPARIN SODIUM
  24. CALCIUM/COLECALCIFEROL [Concomitant]
     Active Substance: CALCIUM\CHOLECALCIFEROL
  25. BUSULFAN. [Suspect]
     Active Substance: BUSULFAN
     Indication: ACUTE LYMPHOCYTIC LEUKAEMIA
     Route: 042
  26. SULFAMETHOXAZOLE/TRIMETHOPRIM [Concomitant]
     Active Substance: SULFAMETHOXAZOLE\TRIMETHOPRIM
  27. ONDANSETRON [Concomitant]
     Active Substance: ONDANSETRON
  28. METOCLOPRAMIDE/METOCLOPRAMIDE GLYCYRRHETINATE/METOCLOPRAMIDE HYDROCHLORIDE [Concomitant]
  29. DEXAMETHASONE. [Concomitant]
     Active Substance: DEXAMETHASONE
     Route: 014
  30. CEFTAZIDIME/CEFTAZIDIME PENTAHYDRATE [Concomitant]
     Active Substance: CEFTAZIDIME
  31. RITUXIMAB. [Suspect]
     Active Substance: RITUXIMAB
     Indication: ACUTE LYMPHOCYTIC LEUKAEMIA
     Route: 042
  32. TRANEXAMIC ACID. [Concomitant]
     Active Substance: TRANEXAMIC ACID
  33. CLOTRIMAZOLE. [Concomitant]
     Active Substance: CLOTRIMAZOLE
  34. RITUXIMAB. [Suspect]
     Active Substance: RITUXIMAB
     Indication: ACUTE LYMPHOCYTIC LEUKAEMIA
     Route: 042
  35. FLUDARABINE/FLUDARABINE PHOSPHATE [Suspect]
     Active Substance: FLUDARABINE PHOSPHATE
     Indication: ACUTE LYMPHOCYTIC LEUKAEMIA
     Route: 042
  36. METHOTREXATE. [Suspect]
     Active Substance: METHOTREXATE
     Indication: ACUTE LYMPHOCYTIC LEUKAEMIA
     Route: 042
  37. TOBRAMYCIN. [Concomitant]
     Active Substance: TOBRAMYCIN
  38. LORAZEPAM. [Concomitant]
     Active Substance: LORAZEPAM
  39. AMLODIPINE [Concomitant]
     Active Substance: AMLODIPINE BESYLATE
  40. BUSULFAN. [Suspect]
     Active Substance: BUSULFAN
     Indication: ACUTE LYMPHOCYTIC LEUKAEMIA
     Route: 042
  41. RITUXIMAB. [Suspect]
     Active Substance: RITUXIMAB
     Indication: ACUTE LYMPHOCYTIC LEUKAEMIA
     Route: 042
  42. FUROSEMIDE. [Concomitant]
     Active Substance: FUROSEMIDE
  43. EPINEPHRINE. [Concomitant]
     Active Substance: EPINEPHRINE
     Route: 030
  44. DIMENHYDRINATE. [Concomitant]
     Active Substance: DIMENHYDRINATE

REACTIONS (9)
  - Thrombocytopenia [Unknown]
  - Transfusion [Unknown]
  - Cytopenia [Unknown]
  - Epistaxis [Unknown]
  - Aplasia [Unknown]
  - Aplastic anaemia [Unknown]
  - Bacteraemia [Unknown]
  - Epstein-Barr virus infection [Unknown]
  - Pancytopenia [Unknown]
